FAERS Safety Report 7128856-2 (Version None)
Quarter: 2010Q4

REPORT INFORMATION
  Report Type: 
  Country: None (occurrence: None)
  Receive Date: 20101130
  Receipt Date: 20101117
  Transmission Date: 20110411
  Serious: Yes (Hospitalization)
  Sender: FDA-Public Use
  Company Number: A0797828A

PATIENT
  Age: 55 Year
  Sex: Male
  Weight: 103.2 kg

DRUGS (7)
  1. AVANDIA [Suspect]
     Route: 048
     Dates: end: 20070101
  2. AVANDAMET [Suspect]
     Route: 048
     Dates: start: 20040901, end: 20050801
  3. GLUCOPHAGE [Concomitant]
  4. GLUCOTROL [Concomitant]
  5. ZESTORETIC [Concomitant]
  6. TOPROL-XL [Concomitant]
  7. CHLORTHALIDONE [Concomitant]

REACTIONS (2)
  - AMNESIA [None]
  - CEREBROVASCULAR ACCIDENT [None]
